FAERS Safety Report 16968081 (Version 1)
Quarter: 2019Q4

REPORT INFORMATION
  Report Type: Spontaneous
  Country: GB (occurrence: GB)
  Receive Date: 20191028
  Receipt Date: 20191028
  Transmission Date: 20200122
  Serious: Yes (Hospitalization)
  Sender: FDA-Public Use
  Company Number: GB-ALLERGAN-1942926US

PATIENT
  Sex: Female

DRUGS (1)
  1. PREDNISOLONE UNK [Suspect]
     Active Substance: PREDNISOLONE
     Indication: PRODUCT USED FOR UNKNOWN INDICATION
     Route: 065

REACTIONS (7)
  - Pollakiuria [Unknown]
  - Drug ineffective [Unknown]
  - Muscle spasms [Unknown]
  - Asthenia [Unknown]
  - Abdominal discomfort [Unknown]
  - Pregnancy [Unknown]
  - Haemorrhage [Unknown]
